FAERS Safety Report 8477774 (Version 45)
Quarter: 2019Q1

REPORT INFORMATION
  Report Type: Report from Study
  Country: CA (occurrence: CA)
  Receive Date: 20120327
  Receipt Date: 20190313
  Transmission Date: 20190418
  Serious: Yes (Hospitalization, Other)
  Sender: FDA-Public Use
  Company Number: PHHY2011CA55156

PATIENT
  Age: 80 Year
  Sex: Male

DRUGS (10)
  1. SALVENT [Concomitant]
     Active Substance: ALBUTEROL
     Indication: EMPHYSEMA
     Route: 065
  2. SANDOSTATIN LAR DEPOT [Suspect]
     Active Substance: OCTREOTIDE ACETATE
     Dosage: UNK
     Route: 030
  3. ACTONEL [Concomitant]
     Active Substance: RISEDRONATE SODIUM
     Indication: PRODUCT USED FOR UNKNOWN INDICATION
     Dosage: QW
     Route: 065
  4. LEFLUNOMIDE. [Suspect]
     Active Substance: LEFLUNOMIDE
     Indication: ARTHRITIS
     Route: 065
  5. SPIRIVA [Concomitant]
     Active Substance: TIOTROPIUM BROMIDE MONOHYDRATE
     Indication: PRODUCT USED FOR UNKNOWN INDICATION
     Route: 065
  6. FOLIC ACID. [Concomitant]
     Active Substance: FOLIC ACID
     Indication: PRODUCT USED FOR UNKNOWN INDICATION
     Dosage: 5 MG, UNK
     Route: 065
  7. OMEPRAZOLE. [Concomitant]
     Active Substance: OMEPRAZOLE
     Indication: GASTRIC DISORDER
     Route: 065
  8. SANDOSTATIN LAR DEPOT [Suspect]
     Active Substance: OCTREOTIDE ACETATE
     Indication: CARCINOID TUMOUR
     Dosage: 30 MG, QMO (EVERY 4 WEEKS)
     Route: 030
     Dates: start: 20101101
  9. METHOTREXATE. [Suspect]
     Active Substance: METHOTREXATE
     Indication: PRODUCT USED FOR UNKNOWN INDICATION
     Dosage: 20 MG, QW
     Route: 065
  10. AMLODIPINE [Suspect]
     Active Substance: AMLODIPINE BESYLATE
     Indication: HYPERTENSION
     Route: 065

REACTIONS (49)
  - Cough [Recovered/Resolved]
  - Contusion [Unknown]
  - Discomfort [Unknown]
  - Product storage error [Unknown]
  - Diarrhoea [Unknown]
  - Anxiety [Unknown]
  - Road traffic accident [Unknown]
  - Blood pressure systolic increased [Unknown]
  - Dyspnoea [Recovering/Resolving]
  - Insomnia [Unknown]
  - Hypersomnia [Unknown]
  - Arterial occlusive disease [Unknown]
  - Dyspnoea exertional [Unknown]
  - Cough [Not Recovered/Not Resolved]
  - Wheezing [Unknown]
  - Night sweats [Unknown]
  - Body temperature decreased [Unknown]
  - Lacrimal disorder [Unknown]
  - Dizziness [Unknown]
  - Diarrhoea [Recovered/Resolved]
  - Rales [Unknown]
  - Balance disorder [Unknown]
  - Hernia [Unknown]
  - Abdominal pain [Unknown]
  - Injection site swelling [Unknown]
  - Fatigue [Unknown]
  - Cough [Recovered/Resolved]
  - Weight decreased [Unknown]
  - Hyperhidrosis [Recovered/Resolved]
  - Chronic obstructive pulmonary disease [Unknown]
  - Breath sounds abnormal [Unknown]
  - Pain [Unknown]
  - Needle issue [Unknown]
  - Injection site mass [Unknown]
  - Limb discomfort [Unknown]
  - Blood test abnormal [Unknown]
  - Musculoskeletal discomfort [Unknown]
  - Gait disturbance [Unknown]
  - Stress [Unknown]
  - Injection site pain [Unknown]
  - Pneumonia [Recovering/Resolving]
  - Malaise [Not Recovered/Not Resolved]
  - Arthralgia [Unknown]
  - Depression [Unknown]
  - Hernia pain [Unknown]
  - Dizziness postural [Unknown]
  - Lower respiratory tract infection [Unknown]
  - Asthenia [Unknown]
  - Lung neoplasm malignant [Unknown]

NARRATIVE: CASE EVENT DATE: 201109
